FAERS Safety Report 8923118 (Version 1)
Quarter: 2012Q4

REPORT INFORMATION
  Report Type: 
  Country: US (occurrence: US)
  Receive Date: 20121123
  Receipt Date: 20121123
  Transmission Date: 20130627
  Serious: No
  Sender: FDA-Public Use
  Company Number: US-JNJFOC-20121102920

PATIENT
  Age: 26 Year
  Sex: Female

DRUGS (6)
  1. INVEGA SUSTENNA [Suspect]
     Indication: PRODUCT USED FOR UNKNOWN INDICATION
     Route: 030
     Dates: start: 2012, end: 201210
  2. TRAZODONE [Concomitant]
     Route: 048
  3. ATIVAN [Concomitant]
     Route: 048
  4. DEPAKOTE [Concomitant]
     Route: 048
  5. COGENTIN [Concomitant]
     Route: 048
  6. TOPAMAX [Concomitant]
     Route: 048

REACTIONS (3)
  - Overdose [Unknown]
  - Asthenia [Unknown]
  - Tremor [Unknown]
